FAERS Safety Report 12160517 (Version 1)
Quarter: 2016Q1

REPORT INFORMATION
  Report Type: Spontaneous
  Country: BE (occurrence: BE)
  Receive Date: 20160308
  Receipt Date: 20160308
  Transmission Date: 20160526
  Serious: Yes (Other)
  Sender: FDA-Public Use
  Company Number: BE-BAYER-2016-038575

PATIENT
  Age: 28 Year
  Sex: Female

DRUGS (2)
  1. JAYDESS 13,5 MG [Suspect]
     Active Substance: LEVONORGESTREL
     Dosage: 14 MCG/24HR, CONT
     Route: 015
     Dates: start: 20140211, end: 20160225
  2. MIRENA [Suspect]
     Active Substance: LEVONORGESTREL
     Dosage: 20 MCG/24HR, CONT
     Route: 015

REACTIONS (7)
  - Drug ineffective [None]
  - Pregnancy with contraceptive device [None]
  - Maternal exposure during pregnancy [None]
  - Cervical conisation [None]
  - Genital haemorrhage [None]
  - Abortion spontaneous [None]
  - Abdominal pain [None]

NARRATIVE: CASE EVENT DATE: 201511
